FAERS Safety Report 9508938 (Version 1)
Quarter: 2013Q3

REPORT INFORMATION
  Report Type: Spontaneous
  Country: US (occurrence: US)
  Receive Date: 20130909
  Receipt Date: 20130909
  Transmission Date: 20140515
  Serious: No
  Sender: FDA-Public Use
  Company Number: US-BRISTOL-MYERS SQUIBB COMPANY-19083484

PATIENT
  Age: 53 Year
  Sex: Female
  Weight: 92.51 kg

DRUGS (4)
  1. ABILIFY [Suspect]
     Indication: DEPRESSION
  2. CYMBALTA [Concomitant]
     Dates: start: 2013
  3. VICTOZA [Concomitant]
     Dosage: INJECTIONS
  4. AMBIEN [Concomitant]

REACTIONS (4)
  - Constipation [Unknown]
  - Dyskinesia [Unknown]
  - Bruxism [Unknown]
  - Headache [Unknown]
